FAERS Safety Report 7921756-7 (Version None)
Quarter: 2011Q4

REPORT INFORMATION
  Report Type: 
  Country: None (occurrence: None)
  Receive Date: 20111117
  Receipt Date: 20111110
  Transmission Date: 20120403
  Serious: Yes (Hospitalization)
  Sender: FDA-Public Use
  Company Number: US-GLAXOSMITHKLINE-B0749861A

PATIENT
  Age: 84 Year
  Sex: Male

DRUGS (15)
  1. ASPIRIN [Concomitant]
     Dosage: 81MG PER DAY
  2. HYDROCHLOROTHIAZIDE [Concomitant]
  3. OMEPRAZOLE [Concomitant]
  4. LIDOCAINE [Concomitant]
  5. RISPERIDONE [Suspect]
     Dosage: .25MG PER DAY
  6. GABAPENTIN [Concomitant]
     Dosage: 100MG TWICE PER DAY
  7. LISINOPRIL [Concomitant]
  8. BUPROPION HCL [Suspect]
     Route: 065
  9. DONEPEZIL HCL [Suspect]
  10. NITROGLYCERIN [Concomitant]
  11. MIRTAZAPINE [Suspect]
     Dosage: 30MG PER DAY
  12. ATENOLOL [Concomitant]
     Dosage: 50MG PER DAY
  13. PRAVASTATIN [Concomitant]
  14. ACETAMINOPHEN [Concomitant]
  15. ALLOPURINOL [Suspect]
     Route: 065

REACTIONS (19)
  - ATAXIA [None]
  - RENAL INJURY [None]
  - ASTHENIA [None]
  - FALL [None]
  - CONFUSIONAL STATE [None]
  - TREMOR [None]
  - GAIT DISTURBANCE [None]
  - ACUTE PSYCHOSIS [None]
  - AGITATION [None]
  - DELIRIUM [None]
  - MOOD ALTERED [None]
  - HALLUCINATION, VISUAL [None]
  - PNEUMONIA [None]
  - MENTAL STATUS CHANGES [None]
  - DRUG INTERACTION [None]
  - MUSCULAR WEAKNESS [None]
  - MYOCLONUS [None]
  - VERTIGO [None]
  - DYSARTHRIA [None]
